FAERS Safety Report 4502569-5 (Version None)
Quarter: 2004Q4

REPORT INFORMATION
  Report Type: 
  Country: None (occurrence: None)
  Receive Date: 20041112
  Receipt Date: 20041029
  Transmission Date: 20050328
  Serious: Yes (Other)
  Sender: FDA-Public Use
  Company Number: 25550

PATIENT
  Age: 52 Year
  Sex: Male

DRUGS (3)
  1. ALDARA [Suspect]
     Indication: SQUAMOUS CELL CARCINOMA
     Dosage: 1 SACHET, 3 IN 1 WEEK (S), TOPICAL
     Route: 061
     Dates: start: 20040818, end: 20040903
  2. PLAQUENIL [Concomitant]
  3. NAPROSYN [Concomitant]

REACTIONS (6)
  - APPLICATION SITE DERMATITIS [None]
  - LARYNGITIS [None]
  - NAIL DISCOLOURATION [None]
  - PYREXIA [None]
  - RASH [None]
  - UNEXPECTED THERAPEUTIC DRUG EFFECT [None]
